FAERS Safety Report 8289510-7 (Version None)
Quarter: 2012Q2

REPORT INFORMATION
  Report Type: 
  Country: None (occurrence: None)
  Receive Date: 20120417
  Receipt Date: 20120412
  Transmission Date: 20120825
  Serious: Yes (Hospitalization, Other)
  Sender: FDA-Public Use
  Company Number: JP-PFIZER INC-2012091786

PATIENT
  Sex: Female

DRUGS (2)
  1. TAXOL [Concomitant]
     Indication: BREAST CANCER
     Dosage: UNK
     Route: 041
     Dates: end: 20120411
  2. LYRICA [Suspect]
     Indication: HYPOAESTHESIA
     Dosage: 1150 MG/DAY
     Route: 048
     Dates: start: 20120404, end: 20120411

REACTIONS (2)
  - PYREXIA [None]
  - INTERSTITIAL LUNG DISEASE [None]
